APPROVED DRUG PRODUCT: CARBATROL
Active Ingredient: CARBAMAZEPINE
Strength: 300MG
Dosage Form/Route: CAPSULE, EXTENDED RELEASE;ORAL
Application: N020712 | Product #002 | TE Code: AB
Applicant: TAKEDA PHARMACEUTICALS USA INC
Approved: Sep 30, 1997 | RLD: Yes | RS: Yes | Type: RX